FAERS Safety Report 5525077-1 (Version None)
Quarter: 2007Q4

REPORT INFORMATION
  Report Type: 
  Country: None (occurrence: None)
  Receive Date: 20071119
  Receipt Date: 20071119
  Transmission Date: 20080405
  Serious: No
  Sender: FDA-Public Use
  Company Number: None

PATIENT
  Age: 57 Year
  Sex: Female
  Weight: 72.5755 kg

DRUGS (1)
  1. CLOZAPINE [Suspect]
     Dosage: 200 MG AMHS PO
     Route: 048

REACTIONS (1)
  - NEUTROPHIL COUNT DECREASED [None]
